FAERS Safety Report 18420466 (Version 1)
Quarter: 2020Q4

REPORT INFORMATION
  Report Type: Spontaneous
  Country: US (occurrence: US)
  Receive Date: 20201023
  Receipt Date: 20201023
  Transmission Date: 20210114
  Serious: Yes (Death)
  Sender: FDA-Public Use
  Company Number: None

PATIENT
  Age: 74 Year
  Sex: Male
  Weight: 83.91 kg

DRUGS (1)
  1. REMDESIVIR. [Suspect]
     Active Substance: REMDESIVIR
     Indication: COVID-19 TREATMENT

REACTIONS (7)
  - Blood lactate dehydrogenase increased [None]
  - Pulmonary function test decreased [None]
  - C-reactive protein increased [None]
  - Delirium [None]
  - Serum ferritin increased [None]
  - Respiratory failure [None]
  - Confusional state [None]

NARRATIVE: CASE EVENT DATE: 20201018
